FAERS Safety Report 13780590 (Version 2)
Quarter: 2018Q4

REPORT INFORMATION
  Report Type: Spontaneous
  Country: US (occurrence: US)
  Receive Date: 20170724
  Receipt Date: 20181219
  Transmission Date: 20190204
  Serious: No
  Sender: FDA-Public Use
  Company Number: US-PFIZER INC-2017315913

PATIENT
  Age: 40 Year
  Sex: Female

DRUGS (1)
  1. XELJANZ XR [Suspect]
     Active Substance: TOFACITINIB CITRATE
     Dosage: 11 MG, UNK

REACTIONS (17)
  - Pain in extremity [Unknown]
  - Anxiety [Unknown]
  - Aggression [Unknown]
  - Anaemia [Unknown]
  - Drug ineffective [Unknown]
  - Arthralgia [Unknown]
  - Hypertension [Unknown]
  - Nausea [Unknown]
  - Nocturia [Unknown]
  - Insomnia [Unknown]
  - Mood swings [Unknown]
  - Prolonged expiration [Unknown]
  - Wheezing [Unknown]
  - Fatigue [Unknown]
  - Morphoea [Unknown]
  - Depression [Unknown]
  - Abdominal discomfort [Unknown]
